FAERS Safety Report 19710117 (Version 1)
Quarter: 2021Q3

REPORT INFORMATION
  Report Type: Spontaneous
  Country: US (occurrence: US)
  Receive Date: 20210816
  Receipt Date: 20210816
  Transmission Date: 20211014
  Serious: No
  Sender: FDA-Public Use
  Company Number: US-SA-2021SA268084

PATIENT
  Age: 60 Year
  Sex: Female

DRUGS (10)
  1. VITAMIN D2 [Concomitant]
     Active Substance: ERGOCALCIFEROL
  2. XELJANZ XR [Concomitant]
     Active Substance: TOFACITINIB CITRATE
  3. ACETAMINOPHEN;CODEINE [Concomitant]
     Active Substance: ACETAMINOPHEN\CODEINE PHOSPHATE
  4. ORENCIA [Concomitant]
     Active Substance: ABATACEPT
  5. OMEPRAZOLE. [Concomitant]
     Active Substance: OMEPRAZOLE
  6. KEVZARA [Suspect]
     Active Substance: SARILUMAB
     Indication: ANAEMIA VITAMIN B12 DEFICIENCY
     Dosage: 200 MG, QOW
     Route: 058
     Dates: start: 20210810
  7. NAPROXEN. [Concomitant]
     Active Substance: NAPROXEN
  8. PLAQUENIL [Concomitant]
     Active Substance: HYDROXYCHLOROQUINE SULFATE
  9. GABAPENTIN. [Concomitant]
     Active Substance: GABAPENTIN
  10. PREDNISONE. [Concomitant]
     Active Substance: PREDNISONE

REACTIONS (2)
  - Leg amputation [Not Recovered/Not Resolved]
  - Product use in unapproved indication [Unknown]

NARRATIVE: CASE EVENT DATE: 20210810
